FAERS Safety Report 5577517-X (Version None)
Quarter: 2007Q4

REPORT INFORMATION
  Report Type: 
  Country: None (occurrence: None)
  Receive Date: 20071228
  Receipt Date: 20071217
  Transmission Date: 20080405
  Serious: Yes (Other)
  Sender: FDA-Public Use
  Company Number: US-PFIZER INC-2007107014

PATIENT
  Sex: Female
  Weight: 53.1 kg

DRUGS (8)
  1. LYRICA [Suspect]
     Indication: NERVE INJURY
  2. VYTORIN [Concomitant]
  3. LOTREL [Concomitant]
  4. LEVOTHYROXINE SODIUM [Concomitant]
  5. PRILOSEC [Concomitant]
  6. VITAMINS [Concomitant]
  7. VITAMIN CAP [Concomitant]
  8. NASONEX [Concomitant]

REACTIONS (4)
  - CONFUSIONAL STATE [None]
  - DISORIENTATION [None]
  - DISTURBANCE IN ATTENTION [None]
  - EMOTIONAL DISORDER [None]
